FAERS Safety Report 5147677-3 (Version None)
Quarter: 2006Q4

REPORT INFORMATION
  Report Type: 
  Country: None (occurrence: None)
  Receive Date: 20061106
  Receipt Date: 20061025
  Transmission Date: 20070319
  Serious: Yes (Death, Other)
  Sender: FDA-Public Use
  Company Number: 149184ISR

PATIENT
  Age: 48 Year
  Sex: Female

DRUGS (2)
  1. PREDNISOLONE [Suspect]
     Dosage: (7.5 MG)
     Dates: start: 20031201
  2. ETANERCEPT [Suspect]
     Dosage: 7.1429 MG (25 MG,2 IN 1 WK)
     Route: 058
     Dates: start: 20030919

REACTIONS (2)
  - CEREBRAL HAEMORRHAGE [None]
  - FALL [None]
